FAERS Safety Report 5214918-3 (Version None)
Quarter: 2007Q1

REPORT INFORMATION
  Report Type: 
  Country: None (occurrence: None)
  Receive Date: 20070122
  Receipt Date: 20070112
  Transmission Date: 20070707
  Serious: Yes (Death, Congenital Anomaly, Other)
  Sender: FDA-Public Use
  Company Number: FR-ABBOTT-07P-056-0355832-00

PATIENT
  Sex: Female
  Weight: 1.3 kg

DRUGS (1)
  1. FENOFIBRATE [Suspect]
     Indication: DRUG EXPOSURE DURING PREGNANCY
     Route: 064

REACTIONS (11)
  - CONGENITAL MUSCULOSKELETAL ANOMALY [None]
  - FOETAL ARRHYTHMIA [None]
  - HYPOTENSION [None]
  - KIDNEY MALFORMATION [None]
  - LOW SET EARS [None]
  - METABOLIC ACIDOSIS [None]
  - MICROCEPHALY [None]
  - NEONATAL RESPIRATORY DISTRESS SYNDROME [None]
  - PREMATURE BABY [None]
  - PULMONARY HYPOPLASIA [None]
  - RENAL FAILURE [None]
